FAERS Safety Report 15363533 (Version 1)
Quarter: 2018Q3

REPORT INFORMATION
  Report Type: Spontaneous
  Country: US (occurrence: US)
  Receive Date: 20180907
  Receipt Date: 20180907
  Transmission Date: 20181010
  Serious: No
  Sender: FDA-Public Use
  Company Number: US-009507513-1809USA001913

PATIENT
  Sex: Female

DRUGS (13)
  1. BENADRYL [Concomitant]
     Active Substance: DIPHENHYDRAMINE HYDROCHLORIDE
  2. NARDIL [Concomitant]
     Active Substance: PHENELZINE SULFATE
  3. TRIAMTERENE. [Concomitant]
     Active Substance: TRIAMTERENE
  4. COZAAR [Suspect]
     Active Substance: LOSARTAN POTASSIUM
     Indication: BLOOD PRESSURE ABNORMAL
     Dosage: ONE 50 MG TABLET, DAILY
     Route: 048
     Dates: start: 2017, end: 2017
  5. MELOXICAM. [Concomitant]
     Active Substance: MELOXICAM
  6. OXYCODONE [Concomitant]
     Active Substance: OXYCODONE
  7. SEROQUEL [Concomitant]
     Active Substance: QUETIAPINE FUMARATE
  8. ROPINIROLE. [Concomitant]
     Active Substance: ROPINIROLE
  9. COZAAR [Suspect]
     Active Substance: LOSARTAN POTASSIUM
     Indication: BLOOD PRESSURE ABNORMAL
     Dosage: ONE 100 MG TABLET, DAILY
     Route: 048
     Dates: start: 20171204, end: 201803
  10. METOPROLOL. [Concomitant]
     Active Substance: METOPROLOL
  11. DEPAKOTE [Concomitant]
     Active Substance: DIVALPROEX SODIUM
  12. ASPIRIN. [Concomitant]
     Active Substance: ASPIRIN
  13. OMEPRAZOLE. [Concomitant]
     Active Substance: OMEPRAZOLE

REACTIONS (4)
  - Dysgeusia [Not Recovered/Not Resolved]
  - Drug ineffective [Not Recovered/Not Resolved]
  - Blood pressure inadequately controlled [Not Recovered/Not Resolved]
  - Burning mouth syndrome [Not Recovered/Not Resolved]

NARRATIVE: CASE EVENT DATE: 2017
